FAERS Safety Report 6261346-8 (Version None)
Quarter: 2009Q3

REPORT INFORMATION
  Report Type: 
  Country: None (occurrence: None)
  Receive Date: 20090709
  Receipt Date: 20090702
  Transmission Date: 20100115
  Serious: Yes (Other)
  Sender: FDA-Public Use
  Company Number: PHHY2009PT27049

PATIENT
  Sex: Female

DRUGS (1)
  1. RASILEZ [Suspect]
     Indication: HYPERTENSION
     Dosage: 300 MG/DAY
     Dates: start: 20090615, end: 20090617

REACTIONS (5)
  - ASTHENIA [None]
  - HEADACHE [None]
  - HYPERTENSIVE CRISIS [None]
  - MALAISE [None]
  - PAIN IN EXTREMITY [None]
